FAERS Safety Report 6984965-X (Version None)
Quarter: 2010Q3

REPORT INFORMATION
  Report Type: 
  Country: None (occurrence: None)
  Receive Date: 20100915
  Receipt Date: 20100908
  Transmission Date: 20110219
  Serious: Yes (Hospitalization)
  Sender: FDA-Public Use
  Company Number: CH-BAYER-201038741GPV

PATIENT
  Age: 83 Year
  Sex: Male

DRUGS (3)
  1. CIPROXIN [Suspect]
     Indication: URINARY TRACT INFECTION STAPHYLOCOCCAL
     Dosage: TOTAL DAILY DOSE: 1000 MG  UNIT DOSE: 500 MG
     Route: 048
     Dates: start: 20100711, end: 20100722
  2. CLINDAMYCIN HCL [Suspect]
     Indication: URINARY TRACT INFECTION STAPHYLOCOCCAL
     Dosage: TOTAL DAILY DOSE: 1200 MG  UNIT DOSE: 300 MG
     Route: 048
     Dates: start: 20100711, end: 20100722
  3. ANTIBIOTICS [Concomitant]
     Dates: start: 20100602

REACTIONS (5)
  - DRUG RASH WITH EOSINOPHILIA AND SYSTEMIC SYMPTOMS [None]
  - EOSINOPHILIA [None]
  - PYREXIA [None]
  - RASH PRURITIC [None]
  - RENAL FAILURE CHRONIC [None]
